FAERS Safety Report 10154116 (Version 1)
Quarter: 2014Q2

REPORT INFORMATION
  Report Type: Spontaneous
  Country: US (occurrence: None)
  Receive Date: 20140502
  Receipt Date: 20140502
  Transmission Date: 20141212
  Serious: Yes (Hospitalization)
  Sender: FDA-Public Use
  Company Number: UTC-047876

PATIENT
  Age: 40 Year
  Sex: Female
  Weight: 58.96 kg

DRUGS (3)
  1. REMODULIN [Suspect]
     Indication: CONGENITAL ANOMALY
     Dosage: 72 UG/KG (0.05 UG/KG, 1 IN 1 MIN)
     Route: 058
     Dates: start: 20130906
  2. ADCIRCA (TADALAFIL) [Concomitant]
  3. LETAIRIS [Concomitant]

REACTIONS (4)
  - Dizziness [None]
  - Dyspnoea [None]
  - Anxiety [None]
  - Medical device complication [None]
